FAERS Safety Report 22811580 (Version 3)
Quarter: 2024Q1

REPORT INFORMATION
  Report Type: Spontaneous
  Country: JP (occurrence: JP)
  Receive Date: 20230810
  Receipt Date: 20240222
  Transmission Date: 20240410
  Serious: Yes (Other)
  Sender: FDA-Public Use
  Company Number: JP-ELI_LILLY_AND_COMPANY-JP202308005396

PATIENT
  Age: 52 Year
  Sex: Female
  Weight: 46 kg

DRUGS (4)
  1. EMGALITY [Suspect]
     Active Substance: GALCANEZUMAB-GNLM
     Indication: Migraine
     Dosage: 240 MG, SINGLE
     Route: 058
     Dates: start: 20230731, end: 20230731
  2. ZETIA [Concomitant]
     Active Substance: EZETIMIBE
  3. AMERGE [Concomitant]
     Active Substance: NARATRIPTAN HYDROCHLORIDE
  4. ETODOLAC [Concomitant]
     Active Substance: ETODOLAC

REACTIONS (1)
  - Graves^ disease [Recovering/Resolving]

NARRATIVE: CASE EVENT DATE: 20230801
